FAERS Safety Report 21637718 (Version 1)
Quarter: 2022Q4

REPORT INFORMATION
  Report Type: Spontaneous
  Country: US (occurrence: US)
  Receive Date: 20221124
  Receipt Date: 20221124
  Transmission Date: 20230113
  Serious: No
  Sender: FDA-Public Use
  Company Number: US-GLAXOSMITHKLINE-USCH2022AMR045249

PATIENT
  Sex: Female
  Weight: 68.04 kg

DRUGS (3)
  1. FLUTICASONE [Suspect]
     Active Substance: FLUTICASONE
     Indication: Lacrimation increased
     Dosage: UNK
     Dates: start: 2022
  2. ATROVENT [Suspect]
     Active Substance: IPRATROPIUM BROMIDE
     Indication: Lacrimation increased
     Dosage: UNK
     Dates: start: 2022
  3. PATADAY [Suspect]
     Active Substance: OLOPATADINE HYDROCHLORIDE
     Indication: Lacrimation increased
     Dosage: UNK
     Dates: start: 2022

REACTIONS (1)
  - Therapeutic product effect incomplete [Unknown]

NARRATIVE: CASE EVENT DATE: 20220101
